FAERS Safety Report 21466339 (Version 1)
Quarter: 2022Q4

REPORT INFORMATION
  Report Type: Spontaneous
  Country: CN (occurrence: CN)
  Receive Date: 20221017
  Receipt Date: 20221017
  Transmission Date: 20230113
  Serious: Yes (Other)
  Sender: FDA-Public Use
  Company Number: CN-SA-SAC20221012001293

PATIENT
  Age: 77 Year
  Sex: Female
  Weight: 62 kg

DRUGS (1)
  1. PLAVIX [Suspect]
     Active Substance: CLOPIDOGREL BISULFATE
     Indication: Antiplatelet therapy
     Dosage: 75 MG, QD
     Route: 048
     Dates: start: 20220914

REACTIONS (1)
  - Asphyxia [Recovering/Resolving]

NARRATIVE: CASE EVENT DATE: 20220915
